FAERS Safety Report 10516718 (Version 1)
Quarter: 2014Q4

REPORT INFORMATION
  Report Type: Spontaneous
  Country: FR (occurrence: FR)
  Receive Date: 20141014
  Receipt Date: 20141014
  Transmission Date: 20150528
  Serious: Yes (Hospitalization)
  Sender: FDA-Public Use
  Company Number: FR-ASTRAZENECA-2014SE76488

PATIENT
  Age: 407 Month
  Sex: Male

DRUGS (9)
  1. HYDROCORTISONE (NON-AZ PRODUCT) [Interacting]
     Active Substance: HYDROCORTISONE
     Indication: ADRENAL INSUFFICIENCY
     Route: 048
     Dates: start: 2012
  2. SPORANOX [Interacting]
     Active Substance: ITRACONAZOLE\SODIUM CHLORIDE
     Indication: BRONCHOPULMONARY ASPERGILLOSIS
     Route: 048
     Dates: start: 200806, end: 201304
  3. OLMETEC [Concomitant]
     Active Substance: OLMESARTAN MEDOXOMIL
  4. BACTRIM [Concomitant]
     Active Substance: SULFAMETHOXAZOLE\TRIMETHOPRIM
  5. FLIXOTIDE DISKUS [Interacting]
     Active Substance: FLUTICASONE PROPIONATE
     Dosage: FORMER TREATMENT, 500 UG TWO TIMES PER DAY
     Route: 055
  6. SPORANOX [Interacting]
     Active Substance: ITRACONAZOLE\SODIUM CHLORIDE
     Indication: BRONCHOPULMONARY ASPERGILLOSIS
     Route: 048
     Dates: start: 2003
  7. COLIMYCINE [Concomitant]
     Active Substance: COLISTIMETHATE SODIUM
  8. PULMICORT TURBUHALER [Suspect]
     Active Substance: BUDESONIDE
     Dosage: ON REQUEST
     Route: 055
  9. ONBREZ [Concomitant]
     Active Substance: INDACATEROL

REACTIONS (5)
  - Self-medication [None]
  - Amyotrophy [None]
  - Drug interaction [Unknown]
  - Cushing^s syndrome [Recovered/Resolved with Sequelae]
  - Ecchymosis [None]

NARRATIVE: CASE EVENT DATE: 201302
